FAERS Safety Report 21886525 (Version 1)
Quarter: 2023Q1

REPORT INFORMATION
  Report Type: Spontaneous
  Country: US (occurrence: US)
  Receive Date: 20230119
  Receipt Date: 20230119
  Transmission Date: 20230418
  Serious: Yes (Hospitalization)
  Sender: FDA-Public Use
  Company Number: US-TEVA-2023-US-2845758

PATIENT
  Sex: Male

DRUGS (1)
  1. MYCOPHENOLATE MOFETIL [Suspect]
     Active Substance: MYCOPHENOLATE MOFETIL
     Indication: Immunosuppressant drug therapy
     Route: 065

REACTIONS (6)
  - Varicella zoster virus infection [Recovered/Resolved]
  - Encephalitis [Recovered/Resolved]
  - Staphylococcal infection [Recovered/Resolved]
  - Herpes zoster oticus [Not Recovered/Not Resolved]
  - Otitis externa [Unknown]
  - Gradenigo^s syndrome [Unknown]
